FAERS Safety Report 25870442 (Version 1)
Quarter: 2025Q4

REPORT INFORMATION
  Report Type: Spontaneous
  Country: US (occurrence: None)
  Receive Date: 20251001
  Receipt Date: 20251001
  Transmission Date: 20260117
  Serious: Yes (Other)
  Sender: FDA-CTU
  Company Number: None

PATIENT
  Age: 73 Year
  Sex: Female

DRUGS (3)
  1. GLATIRAMER ACETATE [Suspect]
     Active Substance: GLATIRAMER ACETATE
     Indication: Multiple sclerosis
     Dosage: FREQUENCY : 3 TIMES A WEEK;?
  2. OXCARBAZEPINE [Suspect]
     Active Substance: OXCARBAZEPINE
  3. CARBAMAZEPINE [Suspect]
     Active Substance: CARBAMAZEPINE

REACTIONS (7)
  - Flushing [None]
  - Nausea [None]
  - Vomiting [None]
  - Pyrexia [None]
  - Dizziness [None]
  - Gait disturbance [None]
  - Injection site pain [None]
